FAERS Safety Report 9734816 (Version 1)
Quarter: 2013Q4

REPORT INFORMATION
  Report Type: Report from Study
  Country: US (occurrence: US)
  Receive Date: 20131206
  Receipt Date: 20131206
  Transmission Date: 20140711
  Serious: Yes (Other)
  Sender: FDA-Public Use
  Company Number: US-ROCHE-1312067

PATIENT
  Sex: 0

DRUGS (4)
  1. TRASTUZUMAB [Suspect]
     Indication: NEOPLASM
     Dosage: LAODING DOSE
     Route: 042
  2. TRASTUZUMAB [Suspect]
     Indication: HER-2 POSITIVE BREAST CANCER
     Dosage: MAINTENANCE DOSE
     Route: 042
  3. MK2206 (AKT INHIBITOR) [Suspect]
     Indication: NEOPLASM
     Route: 048
  4. MK2206 (AKT INHIBITOR) [Suspect]
     Indication: HER-2 POSITIVE BREAST CANCER

REACTIONS (7)
  - Hyperglycaemia [Unknown]
  - Rash [Unknown]
  - Blood alkaline phosphatase increased [Unknown]
  - Aspartate aminotransferase increased [Unknown]
  - Alanine aminotransferase increased [Unknown]
  - Haemoglobin decreased [Unknown]
  - Hypersensitivity [Unknown]
